FAERS Safety Report 7414836-6 (Version None)
Quarter: 2011Q2

REPORT INFORMATION
  Report Type: 
  Country: None (occurrence: None)
  Receive Date: 20110414
  Receipt Date: 20110331
  Transmission Date: 20111010
  Serious: Yes (Hospitalization)
  Sender: FDA-Public Use
  Company Number: US-PFIZER INC-US-WYE-H17997310

PATIENT
  Age: 76 Year
  Sex: Female
  Weight: 56.4 kg

DRUGS (11)
  1. LISINOPRIL [Suspect]
     Dosage: 40.0 MG, 1X/DAY
  2. COLECALCIFEROL [Concomitant]
     Route: 065
  3. HYDROCHLOROTHIAZIDE [Suspect]
     Dosage: 25.0 MG, 1X/DAY
  4. TIOTROPIUM [Suspect]
     Dosage: ONE PUFF DAILY
     Route: 055
  5. TERIPARATIDE [Suspect]
     Dosage: UNK
  6. ASCORBIC ACID [Concomitant]
     Route: 065
  7. EFFEXOR XR [Suspect]
     Dosage: 150.0 MG, 1X/DAY
  8. NORVASC [Suspect]
     Dosage: 10.0 MG, 1X/DAY
  9. ANASTROZOLE [Suspect]
     Indication: BREAST CANCER
     Dosage: 1.0 MG, 1X/DAY
     Dates: start: 20051213, end: 20100804
  10. ACETYLSALICYLIC ACID [Concomitant]
     Route: 065
  11. FISH OIL, HYDROGENATED [Concomitant]
     Route: 065

REACTIONS (7)
  - MYOCARDIAL INFARCTION [None]
  - CARDIAC FAILURE CONGESTIVE [None]
  - BUNDLE BRANCH BLOCK LEFT [None]
  - MYOCARDIAL ISCHAEMIA [None]
  - HYPOXIA [None]
  - CARDIOMYOPATHY [None]
  - TROPONIN INCREASED [None]
